FAERS Safety Report 6969067-0 (Version None)
Quarter: 2010Q3

REPORT INFORMATION
  Report Type: 
  Country: None (occurrence: None)
  Receive Date: 20100903
  Receipt Date: 20100903
  Transmission Date: 20110219
  Serious: Yes (Other)
  Sender: FDA-Public Use
  Company Number: None

PATIENT
  Age: 72 Year
  Sex: Female
  Weight: 95.2554 kg

DRUGS (2)
  1. FLAGYL [Suspect]
     Indication: MULTIPLE ALLERGIES
  2. HYDROXYZINE [Suspect]
     Indication: GENITAL INFECTION FEMALE
     Dates: start: 20100821, end: 20100825

REACTIONS (6)
  - ABASIA [None]
  - APPARENT DEATH [None]
  - BEDRIDDEN [None]
  - HALLUCINATION [None]
  - MALAISE [None]
  - PRODUCT QUALITY ISSUE [None]
